FAERS Safety Report 7888206-0 (Version None)
Quarter: 2011Q4

REPORT INFORMATION
  Report Type: 
  Country: None (occurrence: None)
  Receive Date: 20111103
  Receipt Date: 20111027
  Transmission Date: 20120403
  Serious: Yes (Other)
  Sender: FDA-Public Use
  Company Number: BR-BAYER-2011-104532

PATIENT
  Age: 37 Year
  Sex: Female
  Weight: 65 kg

DRUGS (2)
  1. SERTRALINE HYDROCHLORIDE [Concomitant]
     Indication: STRESS
     Dosage: 1 DF, QD
     Route: 048
     Dates: start: 20111007
  2. MIRENA [Suspect]
     Indication: CONTRACEPTION
     Dosage: 20 ?G, CONT
     Route: 015
     Dates: start: 20110717

REACTIONS (2)
  - POLYCYSTIC OVARIES [None]
  - ACNE [None]
